FAERS Safety Report 6979255-5 (Version None)
Quarter: 2010Q3

REPORT INFORMATION
  Report Type: 
  Country: None (occurrence: None)
  Receive Date: 20100913
  Receipt Date: 20100901
  Transmission Date: 20110219
  Serious: Yes (Hospitalization)
  Sender: FDA-Public Use
  Company Number: US-ABBOTT-10P-163-0666846-00

PATIENT
  Sex: Female

DRUGS (20)
  1. HUMIRA [Suspect]
     Indication: RHEUMATOID ARTHRITIS
     Dates: start: 20091001, end: 20100401
  2. HUMIRA [Suspect]
     Dates: start: 20100601
  3. BARACLUDE [Suspect]
     Indication: PRODUCT USED FOR UNKNOWN INDICATION
     Dates: start: 20100301, end: 20100401
  4. METHOTREXATE [Concomitant]
     Indication: RHEUMATOID ARTHRITIS
  5. MEDROL [Concomitant]
     Indication: PRODUCT USED FOR UNKNOWN INDICATION
  6. TOPROL-XL [Concomitant]
     Indication: HYPERTENSION
  7. BUSPAR [Concomitant]
     Indication: DEPRESSION
  8. WELLBUTRIN [Concomitant]
     Indication: DEPRESSION
  9. LEXAPRO [Concomitant]
     Indication: DEPRESSION
  10. SIMVASTATIN [Concomitant]
     Indication: BLOOD CHOLESTEROL INCREASED
  11. FOLIC ACID [Concomitant]
     Indication: PRODUCT USED FOR UNKNOWN INDICATION
  12. FENOFIBRATE [Concomitant]
     Indication: PRODUCT USED FOR UNKNOWN INDICATION
  13. DOXYCYCLINE [Concomitant]
     Indication: PRODUCT USED FOR UNKNOWN INDICATION
  14. SULFAZINE [Concomitant]
     Indication: PRODUCT USED FOR UNKNOWN INDICATION
  15. OMEPRAZOLE [Concomitant]
     Indication: PRODUCT USED FOR UNKNOWN INDICATION
  16. LISINOPRIL [Concomitant]
     Indication: HYPERTENSION
  17. OXYCODONE [Concomitant]
     Indication: PAIN
  18. OXYCONTIN [Concomitant]
     Indication: PAIN
  19. DIAZEPAM [Concomitant]
     Indication: PRODUCT USED FOR UNKNOWN INDICATION
  20. AMBIEN [Concomitant]
     Indication: INSOMNIA

REACTIONS (9)
  - BACK PAIN [None]
  - BLOOD PRESSURE DECREASED [None]
  - CHOLECYSTECTOMY [None]
  - CONTUSION [None]
  - DEVICE MALFUNCTION [None]
  - INCORRECT DOSE ADMINISTERED [None]
  - NAUSEA [None]
  - PANCREATITIS [None]
  - VOMITING [None]
